FAERS Safety Report 9938727 (Version 2)
Quarter: 2014Q1

REPORT INFORMATION
  Report Type: Spontaneous
  Country: US (occurrence: US)
  Receive Date: 20140303
  Receipt Date: 20140318
  Transmission Date: 20141002
  Serious: No
  Sender: FDA-Public Use
  Company Number: US-PFIZER INC-2014057547

PATIENT
  Sex: Female

DRUGS (9)
  1. FLAGYL [Suspect]
     Dosage: UNK
  2. MORPHINE SULFATE [Suspect]
     Dosage: UNK
  3. KEFLEX [Suspect]
     Dosage: UNK
  4. BACTRIM [Suspect]
     Dosage: UNK
  5. HYDROCODONE [Suspect]
     Dosage: UNK
  6. PROZAC [Suspect]
     Dosage: UNK
  7. OXYCONTIN [Suspect]
     Dosage: UNK
  8. LORTAB [Suspect]
     Dosage: UNK
  9. NORCO [Suspect]
     Dosage: UNK

REACTIONS (1)
  - Drug hypersensitivity [Unknown]
